FAERS Safety Report 16081460 (Version 1)
Quarter: 2019Q1

REPORT INFORMATION
  Report Type: Spontaneous
  Country: US (occurrence: US)
  Receive Date: 20190316
  Receipt Date: 20190316
  Transmission Date: 20190418
  Serious: No
  Sender: FDA-Public Use
  Company Number: US-NEXGEN PHARMA, INC.-2064096

PATIENT
  Age: 20 Year
  Sex: Female

DRUGS (1)
  1. CHENODAL [Suspect]
     Active Substance: CHENODIOL
     Indication: CATARACT
     Route: 048
     Dates: start: 20171223

REACTIONS (3)
  - Hepatic enzyme increased [Unknown]
  - Constipation [Unknown]
  - Dyspepsia [Unknown]
